FAERS Safety Report 18559954 (Version 2)
Quarter: 2021Q4

REPORT INFORMATION
  Report Type: Spontaneous
  Country: DE (occurrence: DE)
  Receive Date: 20201130
  Receipt Date: 20211229
  Transmission Date: 20220303
  Serious: Yes (Hospitalization)
  Sender: FDA-Public Use
  Company Number: DE-NOVARTISPH-NVSC2020DE312920

PATIENT
  Age: 75 Year
  Sex: Male
  Weight: 76 kg

DRUGS (8)
  1. OXALIPLATIN [Suspect]
     Active Substance: OXALIPLATIN
     Indication: Colorectal cancer metastatic
     Dosage: 158 MG, CYCLIC (QCY) (SOLUTION FOR INFUSION)
     Route: 042
     Dates: start: 20190605, end: 20190605
  2. OXALIPLATIN [Suspect]
     Active Substance: OXALIPLATIN
     Dosage: 158 MG, CYCLIC (QCY)
     Route: 042
     Dates: start: 20190821, end: 20190821
  3. FLUOROURACIL [Suspect]
     Active Substance: FLUOROURACIL
     Indication: Colorectal cancer metastatic
     Dosage: 5208 MG, CYCLIC (QCY)
     Route: 042
     Dates: start: 20190605, end: 20190605
  4. FLUOROURACIL [Suspect]
     Active Substance: FLUOROURACIL
     Dosage: 5208 MG, CYCLIC (QCY)
     Route: 042
     Dates: start: 20190821, end: 20190821
  5. LEUCOVORIN [Suspect]
     Active Substance: LEUCOVORIN
     Indication: Colorectal cancer metastatic
     Dosage: 651 MG, CYCLIC (QCY)
     Route: 042
     Dates: start: 20190605, end: 20190605
  6. LEUCOVORIN [Suspect]
     Active Substance: LEUCOVORIN
     Dosage: 651 MG, CYCLIC (QCY)
     Route: 042
     Dates: start: 20190821, end: 20190821
  7. AFLIBERCEPT [Suspect]
     Active Substance: AFLIBERCEPT
     Indication: Colorectal cancer metastatic
     Dosage: 288 MG, CYCLIC (QCY)
     Route: 042
     Dates: start: 20190605, end: 20190605
  8. AFLIBERCEPT [Suspect]
     Active Substance: AFLIBERCEPT
     Dosage: 288 MG, CYCLIC (QCY, ONGOING)
     Route: 042
     Dates: start: 20190807, end: 20190807

REACTIONS (1)
  - Gastrointestinal anastomotic leak [Recovered/Resolved]

NARRATIVE: CASE EVENT DATE: 20191017
